FAERS Safety Report 9768563 (Version 2)
Quarter: 2014Q1

REPORT INFORMATION
  Report Type: Spontaneous
  Country: FR (occurrence: FR)
  Receive Date: 20131218
  Receipt Date: 20140227
  Transmission Date: 20141002
  Serious: No
  Sender: FDA-Public Use
  Company Number: FR-ROCHE-1321250

PATIENT
  Age: 27 Year
  Sex: Female

DRUGS (5)
  1. XOLAIR [Suspect]
     Indication: URTICARIA
     Route: 058
     Dates: start: 20130115
  2. XOLAIR [Suspect]
     Indication: ASTHMA
  3. SOLUPRED (FRANCE) [Concomitant]
     Indication: SINUSITIS
     Route: 065
  4. PULMICORT [Concomitant]
     Indication: ASTHMA
  5. XYZALL [Concomitant]

REACTIONS (8)
  - Urticaria [Recovered/Resolved]
  - Pyrexia [Recovered/Resolved]
  - Quality of life decreased [Unknown]
  - Pruritus [Unknown]
  - Weight increased [Unknown]
  - Insomnia [Unknown]
  - Off label use [Unknown]
  - Injection site plaque [Recovered/Resolved]
